FAERS Safety Report 15621598 (Version 2)
Quarter: 2018Q4

REPORT INFORMATION
  Report Type: Spontaneous
  Country: US (occurrence: US)
  Receive Date: 20181115
  Receipt Date: 20181224
  Transmission Date: 20190205
  Serious: No
  Sender: FDA-Public Use
  Company Number: US-TEVA-2018-US-976765

PATIENT
  Sex: Female

DRUGS (4)
  1. TROKENDI XR 200 MG [Concomitant]
     Indication: MIGRAINE
  2. ESTRADIOL 0.5 MG [Concomitant]
  3. PROGESTERONE 100 MG [Concomitant]
     Active Substance: PROGESTERONE
  4. AJOVY [Suspect]
     Active Substance: FREMANEZUMAB-VFRM
     Indication: MIGRAINE
     Dosage: 225MG/1.5 ML
     Dates: start: 201810

REACTIONS (3)
  - Depressed mood [Unknown]
  - Bedridden [Unknown]
  - Migraine [Unknown]

NARRATIVE: CASE EVENT DATE: 2018
